FAERS Safety Report 17589839 (Version 1)
Quarter: 2020Q1

REPORT INFORMATION
  Report Type: Spontaneous
  Country: US (occurrence: US)
  Receive Date: 20200327
  Receipt Date: 20200327
  Transmission Date: 20200409
  Serious: No
  Sender: FDA-Public Use
  Company Number: US-ALLERGAN-2002208US

PATIENT
  Age: 52 Year
  Sex: Female

DRUGS (2)
  1. LATISSE [Suspect]
     Active Substance: BIMATOPROST
     Indication: GROWTH OF EYELASHES
     Route: 061
  2. ANTI-DEPRESSANT MEDICATION [Concomitant]
     Indication: SMOKING CESSATION THERAPY
     Route: 065

REACTIONS (1)
  - Ocular discomfort [Not Recovered/Not Resolved]
